FAERS Safety Report 8069348-6 (Version None)
Quarter: 2012Q1

REPORT INFORMATION
  Report Type: 
  Country: None (occurrence: None)
  Receive Date: 20120125
  Receipt Date: 20120120
  Transmission Date: 20120608
  Serious: Yes (Hospitalization)
  Sender: FDA-Public Use
  Company Number: US-AMGEN-USASP2012004363

PATIENT
  Age: 49 Year
  Sex: Female
  Weight: 56.7 kg

DRUGS (5)
  1. BEVACIZUMAB [Suspect]
     Indication: BREAST CANCER
     Dosage: 850 MG, Q3WK
     Route: 042
     Dates: start: 20091105
  2. TRASTUZUMAB [Suspect]
     Indication: BREAST CANCER
     Dosage: 340 MG, Q3WK
     Route: 042
     Dates: start: 20091105
  3. DOCETAXEL [Suspect]
     Indication: BREAST CANCER
     Dosage: 120 MG, Q3WK
     Route: 042
     Dates: start: 20091105
  4. NEULASTA [Suspect]
     Indication: PROPHYLAXIS
  5. CARBOPLATIN [Suspect]
     Indication: BREAST CANCER
     Dosage: 670 MG, Q3WK
     Route: 042
     Dates: start: 20091105

REACTIONS (1)
  - SYNCOPE [None]
